FAERS Safety Report 13748313 (Version 2)
Quarter: 2017Q3

REPORT INFORMATION
  Report Type: Spontaneous
  Country: US (occurrence: US)
  Receive Date: 20170713
  Receipt Date: 20170717
  Transmission Date: 20171127
  Serious: No
  Sender: FDA-Public Use
  Company Number: US-PFIZER INC-2017302986

PATIENT
  Age: 43 Year
  Sex: Male
  Weight: 76.2 kg

DRUGS (1)
  1. GABAPENTIN. [Suspect]
     Active Substance: GABAPENTIN
     Indication: SCHIZOAFFECTIVE DISORDER BIPOLAR TYPE
     Dosage: 800MG, TAKING 6 TABLETS DAILY BY MOUTH
     Route: 048
     Dates: start: 201701

REACTIONS (2)
  - Product use in unapproved indication [Unknown]
  - Overdose [Unknown]

NARRATIVE: CASE EVENT DATE: 201701
